FAERS Safety Report 25435705 (Version 1)
Quarter: 2025Q2

REPORT INFORMATION
  Report Type: Spontaneous
  Country: EC (occurrence: None)
  Receive Date: 20250613
  Receipt Date: 20250613
  Transmission Date: 20250717
  Serious: Yes (unspecified)
  Sender: FDA-CTU
  Company Number: None

PATIENT
  Age: 34 Year
  Sex: Female
  Weight: 60 kg

DRUGS (3)
  1. LEVOFLOXACIN [Suspect]
     Active Substance: LEVOFLOXACIN
     Indication: Helicobacter infection
     Route: 048
  2. LEVOTHYROXINE [Concomitant]
     Active Substance: LEVOTHYROXINE
  3. Multiflora [Concomitant]

REACTIONS (16)
  - Insomnia [None]
  - Anxiety [None]
  - Panic attack [None]
  - Malaise [None]
  - Emotional distress [None]
  - Migraine [None]
  - Vision blurred [None]
  - Dizziness [None]
  - Myalgia [None]
  - Back pain [None]
  - Arthralgia [None]
  - Caffeine allergy [None]
  - Persistent depressive disorder [None]
  - Post-traumatic stress disorder [None]
  - Condition aggravated [None]
  - Musculoskeletal disorder [None]

NARRATIVE: CASE EVENT DATE: 20250414
